FAERS Safety Report 14365860 (Version 2)
Quarter: 2018Q1

REPORT INFORMATION
  Report Type: Spontaneous
  Country: AT (occurrence: AT)
  Receive Date: 20180109
  Receipt Date: 20180118
  Transmission Date: 20180509
  Serious: Yes (Hospitalization)
  Sender: FDA-Public Use
  Company Number: AT-ROCHE-2050159

PATIENT
  Age: 68 Year
  Sex: Male

DRUGS (14)
  1. HALOPERIDOL. [Suspect]
     Active Substance: HALOPERIDOL
     Dosage: ORAL 6MG/D ON 19/SEP/2012, IV 15MG/D ON 20/SEP/2012, DECREASED TO IV 5 MG ON 21/SEP/2012
     Route: 042
     Dates: start: 20120920, end: 20120920
  2. SYCREST [Concomitant]
     Active Substance: ASENAPINE MALEATE
     Route: 065
     Dates: start: 20120916, end: 20120919
  3. DEPAKINE [Suspect]
     Active Substance: VALPROATE SODIUM
     Indication: PSYCHOTIC SYMPTOM
     Route: 065
  4. GLUCOSE [Concomitant]
     Active Substance: DEXTROSE
     Route: 065
     Dates: start: 20120920
  5. HALOPERIDOL. [Suspect]
     Active Substance: HALOPERIDOL
     Indication: PSYCHOTIC SYMPTOM
     Route: 065
  6. LORAZEPAM. [Suspect]
     Active Substance: LORAZEPAM
     Indication: PRODUCT USED FOR UNKNOWN INDICATION
     Route: 042
     Dates: start: 20120921
  7. DIAZEPAM. [Suspect]
     Active Substance: DIAZEPAM
     Indication: PRODUCT USED FOR UNKNOWN INDICATION
     Route: 048
     Dates: start: 20120916, end: 20120921
  8. DEPAKINE [Suspect]
     Active Substance: VALPROATE SODIUM
     Indication: MANIA
     Route: 042
     Dates: start: 20120919
  9. HALOPERIDOL. [Suspect]
     Active Substance: HALOPERIDOL
     Dosage: ORAL 6MG/D ON 19/SEP/2012, IV 15MG/D ON 20/SEP/2012, DECREASED TO IV 5 MG ON 21/SEP/2012
     Route: 042
     Dates: start: 20120921, end: 20120921
  10. ABILIFY [Suspect]
     Active Substance: ARIPIPRAZOLE
     Indication: MANIA
     Route: 030
     Dates: start: 20120921, end: 20120924
  11. ABILIFY [Suspect]
     Active Substance: ARIPIPRAZOLE
     Indication: PSYCHOTIC SYMPTOM
     Route: 030
  12. AKINETON [Suspect]
     Active Substance: BIPERIDEN HYDROCHLORIDE
     Indication: PRODUCT USED FOR UNKNOWN INDICATION
     Dosage: DOSE REDUCED TO 5MG/D ON 21/SEP/2012
     Route: 065
     Dates: start: 20120920, end: 20120920
  13. HALOPERIDOL. [Suspect]
     Active Substance: HALOPERIDOL
     Indication: MANIA
     Dosage: ORAL 6MG/D ON 19/SEP/2012, IV 15MG/D ON 20/SEP/2012, DECREASED TO IV 5 MG ON 21/SEP/2012
     Route: 048
     Dates: start: 20120919, end: 20120919
  14. AKINETON [Suspect]
     Active Substance: BIPERIDEN HYDROCHLORIDE
     Dosage: DOSE REDUCED TO 5MG/D ON 21/SEP/2012
     Route: 065
     Dates: start: 20120921

REACTIONS (1)
  - Electrocardiogram QT prolonged [Recovering/Resolving]

NARRATIVE: CASE EVENT DATE: 20120921
